FAERS Safety Report 8314662-X (Version None)
Quarter: 2012Q2

REPORT INFORMATION
  Report Type: 
  Country: None (occurrence: None)
  Receive Date: 20120426
  Receipt Date: 20120416
  Transmission Date: 20120825
  Serious: Yes (Hospitalization)
  Sender: FDA-Public Use
  Company Number: IT-ELI_LILLY_AND_COMPANY-IT201204005207

PATIENT
  Age: 65 Year
  Sex: Female

DRUGS (6)
  1. CLOMIPRAMINE HCL [Concomitant]
     Dosage: 250 MG, UNK
  2. LORAZEPAM [Concomitant]
     Dosage: 8 MG, UNK
     Route: 042
  3. HALOPERIDOL [Concomitant]
     Dosage: 6 MG, UNK
  4. DIAZEPAM [Concomitant]
     Dosage: 8 MG, QD
  5. OLANZAPINE [Suspect]
     Dosage: 10 MG, UNK
  6. VENLAFAXINE [Concomitant]
     Indication: DEPRESSION
     Dosage: 150 MG, UNK

REACTIONS (2)
  - NAUSEA [None]
  - DRUG DOSE OMISSION [None]
